FAERS Safety Report 6641909-8 (Version None)
Quarter: 2010Q1

REPORT INFORMATION
  Report Type: 
  Country: None (occurrence: None)
  Receive Date: 20100319
  Receipt Date: 20100311
  Transmission Date: 20100710
  Serious: Yes (Other)
  Sender: FDA-Public Use
  Company Number: IT-WYE-H14025110

PATIENT
  Sex: Male
  Weight: 75 kg

DRUGS (2)
  1. TEMSIROLIMUS [Suspect]
     Indication: METASTATIC RENAL CELL CARCINOMA
     Route: 042
     Dates: start: 20081125, end: 20100219
  2. BEVACIZUMAB [Suspect]
     Indication: METASTATIC RENAL CELL CARCINOMA
     Dosage: UNKNOWN DOSE EVERY TWO WEEKS
     Route: 042
     Dates: start: 20081125, end: 20091223

REACTIONS (1)
  - NEPHROTIC SYNDROME [None]
